FAERS Safety Report 16119456 (Version 1)
Quarter: 2019Q1

REPORT INFORMATION
  Report Type: Spontaneous
  Country: US (occurrence: US)
  Receive Date: 20190326
  Receipt Date: 20190326
  Transmission Date: 20190418
  Serious: Yes (Other)
  Sender: FDA-Public Use
  Company Number: US-BAYER-2019-052705

PATIENT

DRUGS (9)
  1. LAMICTAL [Concomitant]
     Active Substance: LAMOTRIGINE
     Dosage: 35 UNK (35MG AT 5PM)
  2. LORATADINE. [Concomitant]
     Active Substance: LORATADINE
     Dosage: 10 MG (10MG, 1 AT 8AM)
  3. PROSYNBIOTIC [Concomitant]
     Dosage: UNK , 1 AT LUNCH, 1 AT SUPPER
  4. TYLENOL [Concomitant]
     Active Substance: ACETAMINOPHEN
     Dosage: UNK , AS NEEDED
  5. CRANBERRY EXTRACT [VACCINIUM MACROCARPON] [Concomitant]
     Dosage: 500 MG (500MG, 1 AT 8 AM)
  6. CLONAZEPAM. [Concomitant]
     Active Substance: CLONAZEPAM
     Dosage: UNK , .5 W/ LAMICTAL, 1 AT 9PM
  7. LAMICTAL [Concomitant]
     Active Substance: LAMOTRIGINE
     Dosage: 200 MG (200MG AT 4AM)
  8. ALEVE [Suspect]
     Active Substance: NAPROXEN SODIUM
     Dosage: UNK
  9. SAW PALMETTO [CUCURBITA PEPO OIL;SERENOA REPENS;ZINC GLUCONATE] [Concomitant]
     Dosage: 450 MG (450MG, 1 AT 8AM)

REACTIONS (1)
  - Generalised tonic-clonic seizure [Unknown]
